FAERS Safety Report 4355099-8 (Version None)
Quarter: 2004Q2

REPORT INFORMATION
  Report Type: 
  Country: None (occurrence: None)
  Receive Date: 20040504
  Receipt Date: 20040422
  Transmission Date: 20050107
  Serious: Yes (Hospitalization)
  Sender: FDA-Public Use
  Company Number: 19718

PATIENT
  Age: 69 Year
  Sex: Female
  Weight: 88.4514 kg

DRUGS (11)
  1. NIASPAN [Suspect]
     Indication: PERIPHERAL COLDNESS
     Dosage: 500 MG QHS PO
     Route: 048
     Dates: start: 20040310, end: 20040314
  2. METHOTREXATE [Concomitant]
  3. SYNTHROID [Concomitant]
  4. GLUCOPHAGE [Concomitant]
  5. PREDNISONE [Concomitant]
  6. HYDROCHLOROTHIAZIDE [Concomitant]
  7. VITAMIN E [Concomitant]
  8. TOPROL-XL [Concomitant]
  9. NITROGLYCERIN [Concomitant]
  10. EVISTA [Concomitant]
  11. ECOTRIN [Concomitant]

REACTIONS (7)
  - ANOREXIA [None]
  - ATRIAL FIBRILLATION [None]
  - DYSPNOEA EXERTIONAL [None]
  - LOBAR PNEUMONIA [None]
  - LOOSE STOOLS [None]
  - NAUSEA [None]
  - VOMITING [None]
